FAERS Safety Report 4331985-X (Version None)
Quarter: 2004Q2

REPORT INFORMATION
  Report Type: 
  Country: None (occurrence: None)
  Receive Date: 20040405
  Receipt Date: 20031006
  Transmission Date: 20050107
  Serious: No
  Sender: FDA-Public Use
  Company Number: US-GLAXOSMITHKLINE-A0428815A

PATIENT
  Age: 6 Year
  Sex: Female

DRUGS (3)
  1. SEREVENT [Suspect]
     Indication: ASTHMA
     Route: 055
  2. FLONASE [Suspect]
     Route: 045
  3. ALBUTEROL [Suspect]
     Indication: ASTHMA
     Route: 055

REACTIONS (1)
  - EPISTAXIS [None]
